FAERS Safety Report 8096340-8 (Version None)
Quarter: 2012Q1

REPORT INFORMATION
  Report Type: 
  Country: None (occurrence: None)
  Receive Date: 20120129
  Receipt Date: 20111231
  Transmission Date: 20120608
  Serious: No
  Sender: FDA-Public Use
  Company Number: US-ABBOTT-12P-163-0888861-00

PATIENT
  Age: 57 Year
  Sex: Female

DRUGS (7)
  1. TYLENOL W/ CODEINE NO. 3 [Concomitant]
     Indication: ARTHRALGIA
  2. HUMIRA [Suspect]
     Indication: RHEUMATOID ARTHRITIS
     Dates: end: 20101101
  3. HUMIRA [Suspect]
     Dates: start: 20110101
  4. LEVOTHYROXINE SODIUM [Concomitant]
     Indication: HYPOTHYROIDISM
  5. LIPITOR [Concomitant]
     Indication: BLOOD CHOLESTEROL INCREASED
  6. IBUPROFEN [Concomitant]
     Indication: ARTHRALGIA
  7. CELEXA [Concomitant]
     Indication: HORMONE REPLACEMENT THERAPY

REACTIONS (1)
  - DRUG INEFFECTIVE [None]
